FAERS Safety Report 9053655 (Version 1)
Quarter: 2013Q1

REPORT INFORMATION
  Report Type: Spontaneous
  Country: US (occurrence: None)
  Receive Date: 20130201
  Receipt Date: 20130201
  Transmission Date: 20140127
  Serious: No
  Sender: FDA-Public Use
  Company Number: None

PATIENT
  Age: 14 Year
  Sex: Male
  Weight: 52.2 kg

DRUGS (2)
  1. LATUDA 40MG [Suspect]
     Route: 048
     Dates: start: 20120830, end: 20120904
  2. HALDOL 5MG [Suspect]
     Route: 030
     Dates: start: 20120831, end: 20120904

REACTIONS (3)
  - Facial asymmetry [None]
  - Protrusion tongue [None]
  - Trismus [None]
